FAERS Safety Report 13431154 (Version 1)
Quarter: 2017Q2

REPORT INFORMATION
  Report Type: Spontaneous
  Country: US (occurrence: US)
  Receive Date: 20170412
  Receipt Date: 20170412
  Transmission Date: 20170830
  Serious: Yes (Other)
  Sender: FDA-Public Use
  Company Number: None

PATIENT
  Age: 37 Year
  Sex: Male
  Weight: 70.31 kg

DRUGS (2)
  1. ALDARA [Suspect]
     Active Substance: IMIQUIMOD
     Indication: ANOGENITAL WARTS
     Route: 061
     Dates: start: 20151230, end: 20160330
  2. ALDARA [Suspect]
     Active Substance: IMIQUIMOD
     Indication: PAPILLOMA VIRAL INFECTION
     Route: 061
     Dates: start: 20151230, end: 20160330

REACTIONS (5)
  - Genital burning sensation [None]
  - Drug ineffective [None]
  - Vitiligo [None]
  - Chemical burn [None]
  - Application site discolouration [None]

NARRATIVE: CASE EVENT DATE: 20160521
